FAERS Safety Report 7915521-4 (Version None)
Quarter: 2011Q4

REPORT INFORMATION
  Report Type: 
  Country: None (occurrence: None)
  Receive Date: 20111115
  Receipt Date: 20111102
  Transmission Date: 20120403
  Serious: Yes (Life-Threatening, Hospitalization)
  Sender: FDA-Public Use
  Company Number: TW-MYLANLABS-2011S1022988

PATIENT
  Age: 68 Year
  Sex: Male

DRUGS (3)
  1. LIDOCAINE [Concomitant]
     Indication: PULMONARY AIR LEAKAGE
     Dosage: 20 ML OF 2% LIDOCAINE (400MG)
     Route: 034
  2. MINOCYCLINE HCL [Suspect]
     Indication: PULMONARY AIR LEAKAGE
     Dosage: 300 MG OF MINOCYCLINE IN 20 ML OF SODIUM CHLORIDE
     Route: 034
  3. SODIUM CHLORIDE [Concomitant]
     Indication: PULMONARY AIR LEAKAGE
     Dosage: 20 ML OF SODIUM CHLORIDE CONTAINING MINOCYCLINE 300MG
     Route: 034

REACTIONS (3)
  - DYSPNOEA [None]
  - CARDIO-RESPIRATORY ARREST [None]
  - WHEEZING [None]
